FAERS Safety Report 9310560 (Version 1)
Quarter: 2013Q2

REPORT INFORMATION
  Report Type: Spontaneous
  Country: US (occurrence: US)
  Receive Date: 20130527
  Receipt Date: 20130527
  Transmission Date: 20140414
  Serious: Yes (Other)
  Sender: FDA-Public Use
  Company Number: US-PFIZER INC-2013160021

PATIENT
  Age: 58 Year
  Sex: Male
  Weight: 96.1 kg

DRUGS (3)
  1. NEURONTIN [Suspect]
     Indication: PAIN IN EXTREMITY
     Dosage: 300 MG, 3X/DAY
     Route: 048
  2. NAPROSYN [Concomitant]
     Dosage: UNK
  3. AVENTYL [Concomitant]
     Indication: DEPRESSION
     Dosage: UNK

REACTIONS (2)
  - Diabetes mellitus [Unknown]
  - Drug effect incomplete [Unknown]
